FAERS Safety Report 9013744 (Version 1)
Quarter: 2013Q1

REPORT INFORMATION
  Report Type: Spontaneous
  Country: US (occurrence: None)
  Receive Date: 20130108
  Receipt Date: 20130108
  Transmission Date: 20140127
  Serious: No
  Sender: FDA-Public Use
  Company Number: None

PATIENT
  Age: 67 Year
  Sex: Female

DRUGS (1)
  1. LANTUS 10ML VIAL SANOFI AVENTIS [Suspect]
     Indication: DIABETES MELLITUS
     Dosage: INJECT 100 UNITS UNDER THE SKIN AT BEDTIME
     Route: 058
     Dates: start: 201206

REACTIONS (4)
  - Injection site haemorrhage [None]
  - Urticaria [None]
  - Drug ineffective [None]
  - Product quality issue [None]
